FAERS Safety Report 6931841-4 (Version None)
Quarter: 2010Q3

REPORT INFORMATION
  Report Type: 
  Country: None (occurrence: None)
  Receive Date: 20100819
  Receipt Date: 20100810
  Transmission Date: 20110219
  Serious: Yes (Hospitalization, Other)
  Sender: FDA-Public Use
  Company Number: US-JNJFOC-20100704184

PATIENT
  Sex: Male

DRUGS (2)
  1. LEVAQUIN [Suspect]
     Indication: INFECTION
     Route: 048
  2. PREDNISONE [Suspect]
     Indication: INFLAMMATION
     Route: 065

REACTIONS (3)
  - CARTILAGE INJURY [None]
  - JOINT INJURY [None]
  - TENDON RUPTURE [None]
